FAERS Safety Report 7247668-2 (Version None)
Quarter: 2011Q1

REPORT INFORMATION
  Report Type: 
  Country: None (occurrence: None)
  Receive Date: 20110127
  Receipt Date: 20110122
  Transmission Date: 20110831
  Serious: Yes (Other)
  Sender: FDA-Public Use
  Company Number: US-PFIZER INC-2011015751

PATIENT
  Age: 71 Year
  Sex: Female
  Weight: 68.934 kg

DRUGS (2)
  1. ADVIL [Suspect]
     Indication: ARTHRALGIA
     Dosage: 200 MG, WEEKLY
     Route: 048
     Dates: end: 20110116
  2. ADVIL [Suspect]

REACTIONS (6)
  - DRUG INEFFECTIVE [None]
  - VOMITING [None]
  - DIZZINESS [None]
  - BLOOD PRESSURE INCREASED [None]
  - ARTHRALGIA [None]
  - TINNITUS [None]
